FAERS Safety Report 13208349 (Version 1)
Quarter: 2017Q1

REPORT INFORMATION
  Report Type: Spontaneous
  Country: US (occurrence: US)
  Receive Date: 20170209
  Receipt Date: 20170209
  Transmission Date: 20170428
  Serious: No
  Sender: FDA-Public Use
  Company Number: US-ROCHE-1726645

PATIENT
  Sex: Female

DRUGS (2)
  1. NUTROPIN AQ [Suspect]
     Active Substance: SOMATROPIN
     Dosage: 3 NIGHTS PER WEEK
     Route: 058
     Dates: start: 2014
  2. NUTROPIN AQ [Suspect]
     Active Substance: SOMATROPIN
     Indication: GROWTH HORMONE DEFICIENCY
     Dosage: 4 NIGHTS PER WEEK
     Route: 058
     Dates: start: 2014

REACTIONS (2)
  - Diarrhoea [Unknown]
  - Device leakage [Unknown]
